FAERS Safety Report 23690350 (Version 4)
Quarter: 2024Q4

REPORT INFORMATION
  Report Type: Spontaneous
  Country: US (occurrence: US)
  Receive Date: 20240401
  Receipt Date: 20241121
  Transmission Date: 20250115
  Serious: Yes (Hospitalization)
  Sender: MERCK
  Company Number: US-009507513-2403USA008613

PATIENT
  Sex: Female

DRUGS (11)
  1. KEYTRUDA [Suspect]
     Active Substance: PEMBROLIZUMAB
     Indication: Cervix carcinoma
     Dosage: 200 MILLIGRAM, Q3W
     Route: 042
     Dates: start: 202311
  2. KEYTRUDA [Suspect]
     Active Substance: PEMBROLIZUMAB
     Indication: Endometrial cancer
     Dosage: UNK, Q3W
     Route: 042
     Dates: start: 20231213
  3. KEYTRUDA [Suspect]
     Active Substance: PEMBROLIZUMAB
     Indication: Breast cancer
     Dosage: 200 MILLIGRAM, Q3W
     Route: 042
     Dates: start: 20240122, end: 20240122
  4. KEYTRUDA [Suspect]
     Active Substance: PEMBROLIZUMAB
     Dosage: 200 MILLIGRAM, Q3W
     Route: 042
     Dates: start: 20240214, end: 20240214
  5. KEYTRUDA [Suspect]
     Active Substance: PEMBROLIZUMAB
     Dosage: 200 MILLIGRAM, Q3W
     Route: 042
     Dates: start: 20240303, end: 20240303
  6. KEYTRUDA [Suspect]
     Active Substance: PEMBROLIZUMAB
     Dosage: INFUSION EVERY 3 WEEKS
     Route: 042
     Dates: start: 202401
  7. ARIMIDEX [Concomitant]
     Active Substance: ANASTROZOLE
     Indication: Breast cancer
     Dosage: UNK
  8. METOPROLOL [Concomitant]
     Active Substance: METOPROLOL
     Dosage: INDICATION: BLOOD PRESSURE
  9. IPRATROPIUM BROMIDE [Concomitant]
     Active Substance: IPRATROPIUM BROMIDE
     Dosage: UNK
  10. OCTREOTIDE [Concomitant]
     Active Substance: OCTREOTIDE
     Indication: Diffuse idiopathic pulmonary neuroendocrine cell hyperplasia
     Dosage: DOSE UNKNOWN, QM
  11. OLMESARTAN [Concomitant]
     Active Substance: OLMESARTAN
     Dosage: UNK

REACTIONS (22)
  - Skin laceration [Unknown]
  - Eye swelling [Unknown]
  - Contusion [Unknown]
  - Skin burning sensation [Recovered/Resolved]
  - Vulvovaginal burning sensation [Unknown]
  - Gait disturbance [Not Recovered/Not Resolved]
  - Contusion [Unknown]
  - Nail discolouration [Not Recovered/Not Resolved]
  - Blood pressure decreased [Unknown]
  - Fall [Unknown]
  - Hypertension [Unknown]
  - Pruritus [Recovered/Resolved]
  - Dizziness [Unknown]
  - Inappropriate schedule of product administration [Unknown]
  - Inappropriate schedule of product administration [Unknown]
  - Pruritus [Unknown]
  - Diarrhoea [Unknown]
  - Dry mouth [Unknown]
  - Increased appetite [Unknown]
  - Balance disorder [Unknown]
  - Dyspnoea [Unknown]
  - Injection site pain [Unknown]

NARRATIVE: CASE EVENT DATE: 20240101
